FAERS Safety Report 24691880 (Version 9)
Quarter: 2025Q4

REPORT INFORMATION
  Report Type: Spontaneous
  Country: EU (occurrence: EU)
  Receive Date: 20241203
  Receipt Date: 20251124
  Transmission Date: 20260117
  Serious: Yes (Life-Threatening, Other)
  Sender: MYLAN
  Company Number: EU-ROCHE-10000084302

PATIENT
  Age: 16 Year
  Sex: Male
  Weight: 74.95 kg

DRUGS (121)
  1. METHOTREXATE [Suspect]
     Active Substance: METHOTREXATE
     Indication: Non-Hodgkin^s lymphoma
     Dosage: 15 MG, 1XSTART DATE OF MOST RECENT DOSE OF STUDY DRUG PRIOR TO AE/SAE ON 02-SEP-2024
     Dates: start: 20240726
  2. METHOTREXATE [Suspect]
     Active Substance: METHOTREXATE
     Dosage: 15 MILLIGRAM, TOTAL START DATE OF MOST RECENT DOSE OF STUDY DRUG PRIOR TO AE AND SAE IS 02-SEP-2024
     Dates: start: 20240902
  3. METHOTREXATE [Suspect]
     Active Substance: METHOTREXATE
     Dosage: 15 MILLIGRAM, TOTAL START DATE OF MOST RECENT DOSE OF STUDY DRUG PRIOR TO AE AND SAE IS 02-SEP-2024
     Dates: start: 20240902
  4. IFOSFAMIDE [Suspect]
     Active Substance: IFOSFAMIDE
     Indication: Non-Hodgkin^s lymphoma
     Dosage: 5.3 G
     Dates: start: 20240802
  5. IFOSFAMIDE [Suspect]
     Active Substance: IFOSFAMIDE
     Dosage: 5.6 GRAM (START DATE OF MOST RECENT DOSE OF STUDY DRUGPRIOR TO AE AND SAE ON 05-SEP-2024 DOSE LAST
  6. IFOSFAMIDE [Suspect]
     Active Substance: IFOSFAMIDE
     Dosage: 5.6 G
  7. LENOGRASTIM [Suspect]
     Active Substance: LENOGRASTIM
     Indication: Non-Hodgkin^s lymphoma
     Dosage: UNK
  8. LENOGRASTIM [Suspect]
     Active Substance: LENOGRASTIM
     Dosage: 300 MICROGRAM
  9. LENOGRASTIM [Suspect]
     Active Substance: LENOGRASTIM
     Dosage: UNK
  10. LENOGRASTIM [Suspect]
     Active Substance: LENOGRASTIM
     Indication: Non-Hodgkin^s lymphoma
     Dosage: 280 MICROGRAM
  11. RITUXIMAB [Suspect]
     Active Substance: RITUXIMAB
     Indication: Non-Hodgkin^s lymphoma
     Dosage: START AND END DATE OF MOST RECENT DOSE OF STUDY DRUG PRIOR TO AE AND SAE ON 02-SEP-2024
     Dates: start: 20240902
  12. RITUXIMAB [Suspect]
     Active Substance: RITUXIMAB
     Dosage: UNK
  13. RITUXIMAB [Suspect]
     Active Substance: RITUXIMAB
     Dosage: UNK
  14. RITUXIMAB [Suspect]
     Active Substance: RITUXIMAB
     Dosage: UNK
  15. TOCILIZUMAB [Suspect]
     Active Substance: TOCILIZUMAB
     Indication: Non-Hodgkin^s lymphoma
     Dosage: 460 MILLIGRAM, TOTAL
     Dates: start: 20240807
  16. TOCILIZUMAB [Suspect]
     Active Substance: TOCILIZUMAB
     Dosage: UNK
  17. CYTARABINE [Suspect]
     Active Substance: CYTARABINE
     Indication: Non-Hodgkin^s lymphoma
     Dosage: START DATE OF MOST RECENT DOSE OF STUDY DRUGPRIOR TO AE AND SAE ON 02-SEP-2024
     Dates: start: 20240726
  18. CYTARABINE [Suspect]
     Active Substance: CYTARABINE
     Dosage: START DATE OF MOST RECENT DOSE OF STUDY DRUGPRIOR TO AE AND SAE ON 02-SEP-2024
     Dates: start: 20240902
  19. CYTARABINE [Suspect]
     Active Substance: CYTARABINE
     Dosage: UNK
  20. HYDROCORTISONE [Suspect]
     Active Substance: HYDROCORTISONE
     Indication: Non-Hodgkin^s lymphoma
     Dosage: START DATE OF MOST RECENT DOSE OF STUDY DRUGPRIOR TO AE AND SAE ON 02-SEP-2024
     Dates: start: 20240726
  21. HYDROCORTISONE [Suspect]
     Active Substance: HYDROCORTISONE
     Dosage: START DATE OF MOST RECENT DOSE OF STUDY DRUGPRIOR TO AE AND SAE ON 02-SEP-2024
     Dates: start: 20240902
  22. HYDROCORTISONE [Suspect]
     Active Substance: HYDROCORTISONE
     Dosage: UNK
  23. OBINUTUZUMAB [Suspect]
     Active Substance: OBINUTUZUMAB
     Indication: Non-Hodgkin^s lymphoma
     Dosage: DOSE LAST STUDY DRUG ADMIN PRIOR AE 900 MGSTART DATE OF MOST RECENT DOSE OF STUDY DRUG PRIOR TO AE
     Dates: start: 20240731
  24. OBINUTUZUMAB [Suspect]
     Active Substance: OBINUTUZUMAB
     Dosage: 900 MILLIGRAM TOTAL (DOSE LAST STUDY DRUG ADMIN PRIOR AE 900 MGSTART DATE OF MOST RECENT DOSE
     Dates: start: 20240801
  25. OBINUTUZUMAB [Suspect]
     Active Substance: OBINUTUZUMAB
     Dosage: DOSE LAST STUDY DRUG ADMIN PRIOR AE 900 MGSTART DATE OF MOST RECENT DOSE OF STUDY DRUG PRIOR
  26. OBINUTUZUMAB [Suspect]
     Active Substance: OBINUTUZUMAB
     Dosage: UNK
  27. OBINUTUZUMAB [Suspect]
     Active Substance: OBINUTUZUMAB
     Dosage: UNK
  28. COLUMVI [Suspect]
     Active Substance: GLOFITAMAB-GXBM
     Indication: Non-Hodgkin^s lymphoma
     Dosage: UNK
  29. COLUMVI [Suspect]
     Active Substance: GLOFITAMAB-GXBM
     Dosage: 2.5 MILLIGRAM
  30. COLUMVI [Suspect]
     Active Substance: GLOFITAMAB-GXBM
     Dosage: 30 MILLIGRAM (START DATE OF MOST RECENT DOSE OF STUDY DRUGPRIOR TO AE AND SAE ON 28-AUG-2024 DOSE
  31. MESNA [Suspect]
     Active Substance: MESNA
     Indication: Non-Hodgkin^s lymphoma
     Dosage: DOSE LAST STUDY DRUG ADMIN PRIOR AE 6000 MGSTART DATE OF MOST RECENT DOSE OF STUDY DRUG PRIOR
     Dates: start: 20240802
  32. MESNA [Suspect]
     Active Substance: MESNA
     Dosage: 6000 MILLIGRAM (DOSE LAST STUDY DRUG ADMIN PRIOR AE 6000 MG START DATE OF MOST RECENT DOSE OF
  33. MESNA [Suspect]
     Active Substance: MESNA
     Dosage: 1200 MILLIGRAM
  34. MABTHERA [Suspect]
     Active Substance: RITUXIMAB
     Indication: Non-Hodgkin^s lymphoma
     Dosage: 700MG,TOTAL START AND END DATE OF MOST RECENT DOSE OF STUDY DRUG PRIOR TO AE AND SAE ON 02-SEP-2024
     Dates: start: 20240902
  35. MABTHERA [Suspect]
     Active Substance: RITUXIMAB
     Dosage: UNK
  36. MABTHERA [Suspect]
     Active Substance: RITUXIMAB
     Dosage: UNK
  37. CARBOPLATIN [Suspect]
     Active Substance: CARBOPLATIN
     Indication: Non-Hodgkin^s lymphoma
     Dosage: DOSE LAST STUDY DRUG ADMIN PRIOR AE 1180 MGSTART DATE OF MOST RECENT DOSE OF STUDY DRUG PRIOR
     Dates: start: 20240802
  38. CARBOPLATIN [Suspect]
     Active Substance: CARBOPLATIN
     Dosage: 1180 MILLIGRAM (DOSE LAST STUDY DRUG ADMIN PRIOR AE 1180 MGSTART DATE OF MOST RECENT DOSE OF
  39. ETOPOSIDE [Suspect]
     Active Substance: ETOPOSIDE
     Indication: Non-Hodgkin^s lymphoma
     Dosage: 176 MG, 1XDOSE LAST STUDY DRUG ADMIN PRIOR AE 186 MG START DATE OF MOST RECENT DOSE OF STUDY
     Dates: start: 20240802
  40. ETOPOSIDE [Suspect]
     Active Substance: ETOPOSIDE
     Dosage: 186 MILLIGRAM (DOSE LAST STUDY DRUG ADMIN PRIOR AE 186 MGSTART DATE OF MOST RECENT DOSE OF STUDY
  41. ETOPOSIDE [Suspect]
     Active Substance: ETOPOSIDE
     Dosage: 186 MILLIGRAM
  42. HYDROMORPHONE [Concomitant]
     Active Substance: HYDROMORPHONE
     Indication: Product used for unknown indication
     Dosage: 12 MILLIGRAM, PRN
     Dates: start: 20240808, end: 20240823
  43. HYDROMORPHONE [Concomitant]
     Active Substance: HYDROMORPHONE
     Dosage: 16 MILLIGRAM, PRN
     Dates: start: 20240913, end: 20240918
  44. HYDROMORPHONE [Concomitant]
     Active Substance: HYDROMORPHONE
     Dosage: 8 MILLIGRAM, PRN
     Dates: start: 20240918, end: 20240921
  45. METHYLPREDNISOLONE [Concomitant]
     Active Substance: METHYLPREDNISOLONE
     Indication: Product used for unknown indication
     Dosage: 120 MILLIGRAM, QD
     Dates: start: 20240828, end: 20240828
  46. ACETAMINOPHEN [Concomitant]
     Active Substance: ACETAMINOPHEN
     Indication: Headache
     Dosage: 750 MILLIGRAM, PRN
  47. ACETAMINOPHEN [Concomitant]
     Active Substance: ACETAMINOPHEN
     Dosage: UNK
  48. AMPHOTERICIN B [Concomitant]
     Active Substance: AMPHOTERICIN B
     Dosage: 100 MILLIGRAM, TID
     Dates: start: 20240922
  49. AMPHOTERICIN B [Concomitant]
     Active Substance: AMPHOTERICIN B
     Dosage: UNK
  50. CLEMASTINE [Concomitant]
     Active Substance: CLEMASTINE
     Dosage: 1.6 MILLIGRAM, PRN
     Dates: start: 20240828, end: 20240902
  51. CLEMASTINE [Concomitant]
     Active Substance: CLEMASTINE
     Dosage: UNK
     Dates: start: 20240828, end: 20240902
  52. CAFFEINE [Concomitant]
     Active Substance: CAFFEINE
     Indication: Headache
     Dosage: 200 MILLIGRAM, PRN
     Dates: start: 20240727, end: 20240925
  53. Tranexamsaure eberth [Concomitant]
     Indication: Epistaxis
     Dosage: UNK
  54. HUMAN RED BLOOD CELL [Concomitant]
     Active Substance: HUMAN RED BLOOD CELL
     Indication: Anaemia
     Dosage: UNK
  55. HUMAN RED BLOOD CELL [Concomitant]
     Active Substance: HUMAN RED BLOOD CELL
     Indication: Platelet count decreased
  56. PLATELETS [Concomitant]
     Active Substance: HUMAN PLATELET, ALLOGENIC
     Indication: Platelet count decreased
     Dosage: UNK
  57. PLATELETS [Concomitant]
     Active Substance: HUMAN PLATELET, ALLOGENIC
     Indication: Anaemia
  58. MELATONIN [Concomitant]
     Active Substance: MELATONIN
     Dosage: 5 MILLIGRAM, QD
     Dates: start: 20240806, end: 20240913
  59. LEVETIRACETAM [Concomitant]
     Active Substance: LEVETIRACETAM
     Indication: Encephalopathy
     Dosage: 1000 MILLIGRAM, BID
  60. LEVETIRACETAM [Concomitant]
     Active Substance: LEVETIRACETAM
     Dosage: 1500 MILLIGRAM, BID
     Dates: start: 20240903, end: 20240922
  61. LEVETIRACETAM [Concomitant]
     Active Substance: LEVETIRACETAM
     Dosage: 1500 MILLIGRAM
     Dates: start: 20240923, end: 20240923
  62. LEVETIRACETAM [Concomitant]
     Active Substance: LEVETIRACETAM
     Dosage: 500 MILLIGRAM, BID
     Dates: start: 20240805, end: 20240901
  63. LEVETIRACETAM [Concomitant]
     Active Substance: LEVETIRACETAM
     Dosage: UNK
  64. LEVETIRACETAM [Concomitant]
     Active Substance: LEVETIRACETAM
     Indication: Encephalopathy
     Dosage: 1500 MILLIGRAM, QD
     Dates: start: 20240924
  65. TRANEXAMIC ACID [Concomitant]
     Active Substance: TRANEXAMIC ACID
     Indication: Epistaxis
     Dosage: 1 OTHER, PRN
  66. ONDANSETRON [Concomitant]
     Active Substance: ONDANSETRON
     Indication: Prophylaxis of nausea and vomiting
     Dosage: 8 MILLIGRAM, TID
     Dates: start: 20240902, end: 20240902
  67. ONDANSETRON [Concomitant]
     Active Substance: ONDANSETRON
     Dosage: 8 MILLIGRAM, BID
     Dates: start: 20240903, end: 20240906
  68. ONDANSETRON [Concomitant]
     Active Substance: ONDANSETRON
     Dosage: 8 MILLIGRAM, QD
     Dates: start: 20240907, end: 20240907
  69. ONDANSETRON [Concomitant]
     Active Substance: ONDANSETRON
     Dosage: 8 MILLIGRAM, BID
     Dates: start: 20240903, end: 20240906
  70. SULFAMETHOXAZOLE\TRIMETHOPRIM [Concomitant]
     Active Substance: SULFAMETHOXAZOLE\TRIMETHOPRIM
     Dosage: 320 MILLIGRAM, BIW
     Dates: start: 20240726, end: 20240913
  71. SULFAMETHOXAZOLE\TRIMETHOPRIM [Concomitant]
     Active Substance: SULFAMETHOXAZOLE\TRIMETHOPRIM
     Dosage: 320 MILLIGRAM, BIW
     Dates: start: 20240924
  72. PANTOPRAZOLE [Concomitant]
     Active Substance: PANTOPRAZOLE
     Dosage: 40 MILLIGRAM, QD
     Dates: start: 20240908, end: 20240915
  73. PANTOPRAZOLE [Concomitant]
     Active Substance: PANTOPRAZOLE
     Dosage: 40 MILLIGRAM, QD
     Dates: start: 20240917, end: 20240923
  74. PANTOPRAZOLE [Concomitant]
     Active Substance: PANTOPRAZOLE
     Dosage: 40 MILLIGRAM, QD
     Dates: start: 20240728, end: 20240907
  75. CAFFEINE [Concomitant]
     Active Substance: CAFFEINE
     Indication: Headache
     Dosage: 200 MILLIGRAM, PRN
     Dates: start: 20240727, end: 20240925
  76. CAFFEINE [Concomitant]
     Active Substance: CAFFEINE
     Dosage: UNK
     Dates: start: 20240727, end: 20240925
  77. DEXAMETHASONE [Concomitant]
     Active Substance: DEXAMETHASONE
     Indication: Neoplasm malignant
     Dosage: UNK
  78. DIMENHYDRINATE [Concomitant]
     Active Substance: DIMENHYDRINATE
     Indication: Prophylaxis of nausea and vomiting
     Dosage: 50 MILLIGRAM, PRN
     Dates: start: 20240906, end: 20240906
  79. DIMENHYDRINATE [Concomitant]
     Active Substance: DIMENHYDRINATE
     Indication: Prophylaxis of nausea and vomiting
     Dosage: 62 MILLIGRAM, PRN
     Dates: start: 20240906, end: 20240906
  80. MEROPENEM [Concomitant]
     Active Substance: MEROPENEM
     Indication: Febrile neutropenia
     Dosage: 2 GRAM, TID
     Dates: start: 20240815, end: 20240901
  81. MEROPENEM [Concomitant]
     Active Substance: MEROPENEM
     Dosage: 2 GRAM, QD
     Dates: start: 20240902, end: 20240902
  82. TEICOPLANIN [Concomitant]
     Active Substance: TEICOPLANIN
     Indication: Cytokine release syndrome
     Dosage: 400 MILLIGRAM, BID
     Dates: start: 20240830, end: 20240830
  83. TEICOPLANIN [Concomitant]
     Active Substance: TEICOPLANIN
     Dosage: 400 MILLIGRAM, QD
     Dates: start: 20240831, end: 20240901
  84. NALOXONE HYDROCHLORIDE [Concomitant]
     Active Substance: NALOXONE HYDROCHLORIDE
     Dosage: 0.34 MILLIGRAM, QD
     Dates: start: 20240808, end: 20240820
  85. NALOXONE HYDROCHLORIDE [Concomitant]
     Active Substance: NALOXONE HYDROCHLORIDE
     Dosage: 0.17 MILLIGRAM, QD
     Dates: start: 20240820, end: 20240821
  86. NALOXONE HYDROCHLORIDE [Concomitant]
     Active Substance: NALOXONE HYDROCHLORIDE
     Dosage: 0.34 MILLIGRAM, QD
     Dates: start: 20240808, end: 20240820
  87. NALOXONE HYDROCHLORIDE [Concomitant]
     Active Substance: NALOXONE HYDROCHLORIDE
     Dosage: 0.17 MILLIGRAM, QD
     Dates: start: 20240820, end: 20240821
  88. NALOXONE HYDROCHLORIDE [Concomitant]
     Active Substance: NALOXONE HYDROCHLORIDE
     Dosage: 0.34 MILLIGRAM, QD
     Dates: start: 20240808, end: 20240820
  89. NALOXONE HYDROCHLORIDE [Concomitant]
     Active Substance: NALOXONE HYDROCHLORIDE
     Dosage: 0.17 MILLIGRAM, QD
     Dates: start: 20240820, end: 20240821
  90. FILGRASTIM [Concomitant]
     Active Substance: FILGRASTIM
     Indication: Neutropenia
     Dosage: 300 MICROGRAM, QD
     Dates: start: 20240806, end: 20240806
  91. FILGRASTIM [Concomitant]
     Active Substance: FILGRASTIM
     Dosage: 300 MICROGRAM, QD
     Dates: start: 20240808, end: 20240812
  92. FILGRASTIM [Concomitant]
     Active Substance: FILGRASTIM
     Dosage: 300 MICROGRAM, QD
     Dates: start: 20240813, end: 20240823
  93. FILGRASTIM [Concomitant]
     Active Substance: FILGRASTIM
     Dosage: 300 MICROGRAM, QD
     Dates: start: 20240825, end: 20240826
  94. FILGRASTIM [Concomitant]
     Active Substance: FILGRASTIM
     Dosage: 350 MICROGRAM, QD
     Dates: start: 20240912, end: 20240927
  95. FILGRASTIM [Concomitant]
     Active Substance: FILGRASTIM
     Dosage: 600 MICROGRAM, QD
     Dates: start: 20240928
  96. FILGRASTIM [Concomitant]
     Active Substance: FILGRASTIM
     Indication: Neutropenia
     Dosage: 300 MICROGRAM, QD
     Dates: start: 20240813, end: 20240823
  97. FILGRASTIM [Concomitant]
     Active Substance: FILGRASTIM
     Dosage: 300 MICROGRAM, QD
     Dates: start: 20240825, end: 20240826
  98. FILGRASTIM [Concomitant]
     Active Substance: FILGRASTIM
     Dosage: 300 MICROGRAM, QD
     Dates: start: 20240912, end: 20240927
  99. FILGRASTIM [Concomitant]
     Active Substance: FILGRASTIM
     Dosage: 600 MICROGRAM, QD
     Dates: start: 20240928
  100. TRAMADOL [Concomitant]
     Active Substance: TRAMADOL
     Indication: Pain
     Dosage: 50 MILLIGRAM, PRN
     Dates: start: 20240829, end: 20240829
  101. TRAMADOL [Concomitant]
     Active Substance: TRAMADOL
     Indication: Headache
     Dosage: 50 MILLIGRAM, PRN
     Dates: start: 20240830, end: 20241001
  102. TRAMADOL [Concomitant]
     Active Substance: TRAMADOL
     Dosage: 50 MILLIGRAM, PRN
     Dates: start: 20240930, end: 20241001
  103. TRAMADOL [Concomitant]
     Active Substance: TRAMADOL
     Dosage: 50 MILLIGRAM, PRN
     Dates: start: 20240929, end: 20240929
  104. TRAMADOL [Concomitant]
     Active Substance: TRAMADOL
     Indication: Pain
     Dosage: 50 MILLIGRAM, PRN
     Dates: start: 20240911, end: 20240913
  105. TRAMADOL [Concomitant]
     Active Substance: TRAMADOL
     Indication: Headache
  106. TRAMADOL [Concomitant]
     Active Substance: TRAMADOL
     Indication: Pain
     Dosage: 50 MILLIGRAM, PRN
     Dates: start: 20240829, end: 20240829
  107. TRAMADOL [Concomitant]
     Active Substance: TRAMADOL
     Indication: Headache
     Dosage: 50 MILLIGRAM, PRN
     Dates: start: 20240929, end: 20240929
  108. TRAMADOL [Concomitant]
     Active Substance: TRAMADOL
     Dosage: 50 MILLIGRAM, PRN
     Dates: start: 20240930, end: 20241001
  109. TRANEXAMIC ACID [Concomitant]
     Active Substance: TRANEXAMIC ACID
     Indication: Epistaxis
     Dosage: 500 MILLIGRAM, TID
     Dates: start: 20240814, end: 20240820
  110. TRANEXAMIC ACID [Concomitant]
     Active Substance: TRANEXAMIC ACID
     Dosage: 500 MILLIGRAM, BID
     Dates: start: 20240821, end: 20240821
  111. IBUPROFEN [Concomitant]
     Active Substance: IBUPROFEN
     Indication: Pain
     Dosage: 40 MILLIGRAM, PRN
     Dates: start: 20240905, end: 20240905
  112. IBUPROFEN [Concomitant]
     Active Substance: IBUPROFEN
     Dosage: 400 MILLIGRAM, PRN
     Dates: start: 20240905, end: 20240905
  113. METAMIZOLE [Concomitant]
     Active Substance: METAMIZOLE
     Indication: Encephalopathy
     Dosage: 750 MILLIGRAM, PRN
     Dates: start: 20240815, end: 20240916
  114. MICAFUNGIN [Concomitant]
     Active Substance: MICAFUNGIN SODIUM
     Indication: Pain
     Dosage: 200 MILLIGRAM, BIWEEKLY (400 MG, QW)
     Dates: start: 20240809, end: 20240830
  115. MICAFUNGIN [Concomitant]
     Active Substance: MICAFUNGIN SODIUM
     Dosage: 200 MILLIGRAM
     Dates: start: 20240910, end: 20240913
  116. MICAFUNGIN [Concomitant]
     Active Substance: MICAFUNGIN SODIUM
     Dosage: 200 MILLIGRAM, Q3D
     Dates: start: 20240910, end: 20240913
  117. MICAFUNGIN [Concomitant]
     Active Substance: MICAFUNGIN SODIUM
     Dosage: 100 MILLIGRAM, QD
     Dates: start: 20240918, end: 20240918
  118. MICAFUNGIN [Concomitant]
     Active Substance: MICAFUNGIN SODIUM
     Dosage: 100 MILLIGRAM, QD
     Dates: start: 20240916, end: 20240917
  119. MICAFUNGIN [Concomitant]
     Active Substance: MICAFUNGIN SODIUM
     Dosage: 200 MILLIGRAM, BIW
     Dates: start: 20240809, end: 20240830
  120. MICAFUNGIN [Concomitant]
     Active Substance: MICAFUNGIN SODIUM
     Dosage: 200 MILLIGRAM, BIW
     Dates: start: 20240910, end: 20240913
  121. TRAMADOL [Concomitant]
     Active Substance: TRAMADOL
     Indication: Pain
     Dosage: 100 MILLIGRAM, BID

REACTIONS (3)
  - Sepsis [Recovered/Resolved]
  - Febrile neutropenia [Unknown]
  - Off label use [Unknown]

NARRATIVE: CASE EVENT DATE: 20240916
